FAERS Safety Report 5380345-1 (Version None)
Quarter: 2007Q3

REPORT INFORMATION
  Report Type: 
  Country: None (occurrence: None)
  Receive Date: 20070706
  Receipt Date: 20070521
  Transmission Date: 20080115
  Serious: No
  Sender: FDA-Public Use
  Company Number: A0652123A

PATIENT
  Age: 63 Year
  Sex: Female

DRUGS (6)
  1. TYKERB [Suspect]
     Indication: BREAST CANCER
     Dosage: 250MG FIVE TIMES PER DAY
     Route: 048
     Dates: start: 20070401
  2. XELODA [Concomitant]
  3. COUMADIN [Concomitant]
  4. LEXAPRO [Concomitant]
  5. PROTONIX [Concomitant]
  6. KEPPRA [Concomitant]

REACTIONS (1)
  - DIARRHOEA [None]
